FAERS Safety Report 9637025 (Version 1)
Quarter: 2013Q4

REPORT INFORMATION
  Report Type: Spontaneous
  Country: US (occurrence: None)
  Receive Date: 20131011
  Receipt Date: 20131011
  Transmission Date: 20140711
  Serious: No
  Sender: FDA-Public Use
  Company Number: SP06860

PATIENT
  Sex: 0

DRUGS (1)
  1. FULYZAQ [Suspect]
     Indication: DIARRHOEA
     Dosage: ORAL
     Route: 048

REACTIONS (1)
  - Constipation [None]
